FAERS Safety Report 14152106 (Version 1)
Quarter: 2017Q4

REPORT INFORMATION
  Report Type: Spontaneous
  Country: US (occurrence: None)
  Receive Date: 20171102
  Receipt Date: 20171102
  Transmission Date: 20180321
  Serious: Yes (Death, Hospitalization)
  Sender: FDA-Public Use
  Company Number: None

PATIENT
  Age: 16 Year
  Sex: Male
  Weight: 98.5 kg

DRUGS (14)
  1. CYTARABINE. [Suspect]
     Active Substance: CYTARABINE
     Dates: end: 20171011
  2. MIRALAX [Concomitant]
     Active Substance: POLYETHYLENE GLYCOL 3350
  3. PENTAMIDINE [Concomitant]
     Active Substance: PENTAMIDINE
  4. PANTOPRAZOLE [Concomitant]
     Active Substance: PANTOPRAZOLE
  5. MITOXANTRONE HYDROCHLORIDE. [Suspect]
     Active Substance: MITOXANTRONE HYDROCHLORIDE
     Dates: end: 20171005
  6. HYDROCORTISONE. [Suspect]
     Active Substance: HYDROCORTISONE
     Dates: end: 20171011
  7. ZOLOFT [Concomitant]
     Active Substance: SERTRALINE HYDROCHLORIDE
  8. ONCASPAR [Suspect]
     Active Substance: PEGASPARGASE
     Dates: end: 20171006
  9. METHOTREXATE. [Suspect]
     Active Substance: METHOTREXATE
     Dates: end: 20171011
  10. KEPPRA [Concomitant]
     Active Substance: LEVETIRACETAM
  11. VITAMIN D [Concomitant]
     Active Substance: CHOLECALCIFEROL
  12. DEXAMETHASONE. [Suspect]
     Active Substance: DEXAMETHASONE
     Dates: end: 20171018
  13. VINCRISTINE SULFATE. [Suspect]
     Active Substance: VINCRISTINE SULFATE
     Dates: end: 20171018
  14. ABILIFY [Concomitant]
     Active Substance: ARIPIPRAZOLE

REACTIONS (24)
  - Dyspnoea [None]
  - Blood culture positive [None]
  - Respiratory failure [None]
  - Bradycardia [None]
  - Multiple organ dysfunction syndrome [None]
  - Hypoxia [None]
  - Hepatic failure [None]
  - Pyrexia [None]
  - Hypotension [None]
  - Hyperbilirubinaemia [None]
  - Prothrombin time prolonged [None]
  - Pancytopenia [None]
  - Diarrhoea [None]
  - International normalised ratio increased [None]
  - Septic shock [None]
  - Streptococcal infection [None]
  - Pulmonary embolism [None]
  - Chest pain [None]
  - Pneumonia [None]
  - Renal failure [None]
  - Ammonia increased [None]
  - Tachycardia [None]
  - Bacteraemia [None]
  - Cardio-respiratory arrest [None]

NARRATIVE: CASE EVENT DATE: 20171019
